FAERS Safety Report 9500613 (Version 1)
Quarter: 2013Q3

REPORT INFORMATION
  Report Type: Spontaneous
  Country: US (occurrence: None)
  Receive Date: 20130904
  Receipt Date: 20130904
  Transmission Date: 20140515
  Serious: Yes (Other)
  Sender: FDA-Public Use
  Company Number: None

PATIENT
  Age: 77 None
  Sex: Female
  Weight: 81.19 kg

DRUGS (9)
  1. ZOLPIDEM [Suspect]
     Indication: MIDDLE INSOMNIA
     Route: 048
     Dates: start: 20130822, end: 20130825
  2. COZAAR [Concomitant]
  3. LEVOTHROXIN [Concomitant]
  4. METFORMIN [Concomitant]
  5. MELATONIN PLUS [Concomitant]
  6. PREMARIN [Concomitant]
  7. BAYER CONTOU [Concomitant]
  8. CINNAMON [Concomitant]
  9. VITAMIN CALCIUM + D [Concomitant]

REACTIONS (2)
  - Nocturia [None]
  - Urinary incontinence [None]
